FAERS Safety Report 9206954 (Version 1)
Quarter: 2013Q1

REPORT INFORMATION
  Report Type: Spontaneous
  Country: US (occurrence: None)
  Receive Date: 20120713
  Receipt Date: 20120713
  Transmission Date: 20140127
  Serious: No
  Sender: FDA-Public Use
  Company Number: PHEH2012US009828

PATIENT
  Age: 10 Year
  Sex: Female
  Weight: 63 kg

DRUGS (1)
  1. ILARIS [Suspect]
     Indication: CRYOPYRIN ASSOCIATED PERIODIC SYNDROME
     Dosage: EVERY 8 WEEKS
     Dates: start: 20100101

REACTIONS (6)
  - Fall [None]
  - Ligament sprain [None]
  - Urticaria [None]
  - Feeling abnormal [None]
  - Rash [None]
  - Pain [None]
